FAERS Safety Report 6526366-4 (Version None)
Quarter: 2010Q1

REPORT INFORMATION
  Report Type: 
  Country: None (occurrence: None)
  Receive Date: 20100105
  Receipt Date: 20091224
  Transmission Date: 20100710
  Serious: Yes (Hospitalization)
  Sender: FDA-Public Use
  Company Number: IT-TEVA-219117ISR

PATIENT
  Sex: Male

DRUGS (13)
  1. VINCRISTINE [Suspect]
     Indication: HODGKIN'S DISEASE
     Route: 042
     Dates: start: 20090824, end: 20091013
  2. RITUXIMAB [Suspect]
     Indication: HODGKIN'S DISEASE
     Route: 042
     Dates: start: 20090825, end: 20091013
  3. ETOPOSIDE [Suspect]
     Indication: HODGKIN'S DISEASE
     Route: 042
     Dates: start: 20090817, end: 20091008
  4. ACICLOVIR [Concomitant]
     Route: 048
     Dates: start: 20090817, end: 20091017
  5. BLEOMYCIN SULFATE [Concomitant]
     Route: 042
     Dates: start: 20090824, end: 20091013
  6. DOXORUBICIN HCL [Concomitant]
     Route: 042
     Dates: start: 20090817, end: 20091006
  7. CYCLOPHOSPHAMIDE [Concomitant]
     Route: 042
     Dates: start: 20090817, end: 20091006
  8. MESNA [Concomitant]
     Route: 042
     Dates: start: 20090817, end: 20091006
  9. METHYLPREDNISOLONE SODIUM SUCCINATE [Concomitant]
     Route: 042
     Dates: start: 20090817, end: 20091008
  10. PROCARBAZINE HYDROCHLORIDE [Concomitant]
     Route: 048
     Dates: start: 20090817, end: 20091017
  11. PREDNISONE [Concomitant]
     Route: 048
     Dates: start: 20090817, end: 20091017
  12. FILGRASTIM [Concomitant]
     Route: 058
  13. ALLOPURINOL [Concomitant]
     Route: 048
     Dates: start: 20090817, end: 20091017

REACTIONS (2)
  - FEBRILE NEUTROPENIA [None]
  - HERPES VIRUS INFECTION [None]
